FAERS Safety Report 9147881 (Version 1)
Quarter: 2013Q1

REPORT INFORMATION
  Report Type: Spontaneous
  Country: CN (occurrence: CN)
  Receive Date: 20130307
  Receipt Date: 20130307
  Transmission Date: 20140127
  Serious: Yes (Hospitalization)
  Sender: FDA-Public Use
  Company Number: PHHY2010CN32792

PATIENT
  Age: 42 Year
  Sex: Female

DRUGS (4)
  1. MIACALCIC [Suspect]
     Indication: RHEUMATOID ARTHRITIS
     Dosage: 50 IU, QD
     Dates: start: 20100326, end: 20100327
  2. CALCIUM CARBONATE [Concomitant]
  3. CALCIFEROL [Concomitant]
  4. METHOTREXATE [Concomitant]

REACTIONS (3)
  - Palpitations [Recovering/Resolving]
  - Vomiting [Recovering/Resolving]
  - Nausea [Recovering/Resolving]
